FAERS Safety Report 6095302-X (Version None)
Quarter: 2009Q1

REPORT INFORMATION
  Report Type: 
  Country: None (occurrence: None)
  Receive Date: 20090227
  Receipt Date: 20080919
  Transmission Date: 20090719
  Serious: No
  Sender: FDA-Public Use
  Company Number: A0713274A

PATIENT
  Age: 16 Year
  Sex: Female
  Weight: 60.6 kg

DRUGS (3)
  1. LAMICTAL [Suspect]
     Indication: PARTIAL SEIZURES
     Dosage: 75MG TWICE PER DAY
     Route: 048
     Dates: start: 20070701
  2. DEPAKOTE [Suspect]
     Route: 048
     Dates: start: 20020401, end: 20080208
  3. ZONISAMIDE [Concomitant]
     Dosage: 200MG AT NIGHT
     Route: 048
     Dates: start: 20080201

REACTIONS (1)
  - ALOPECIA [None]
